FAERS Safety Report 4706623-4 (Version None)
Quarter: 2005Q3

REPORT INFORMATION
  Report Type: 
  Country: None (occurrence: None)
  Receive Date: 20050705
  Receipt Date: 20050425
  Transmission Date: 20060218
  Serious: Yes (Other)
  Sender: FDA-Public Use
  Company Number: GB-ROCHE-403287

PATIENT
  Age: 72 Year
  Sex: Female

DRUGS (3)
  1. CYMEVENE [Suspect]
     Route: 042
     Dates: start: 20050419
  2. CYMEVENE [Suspect]
     Route: 042
     Dates: end: 20050426
  3. SEPTRIN [Suspect]
     Route: 042
     Dates: start: 20050405, end: 20050418

REACTIONS (1)
  - DEAFNESS [None]
